FAERS Safety Report 23920389 (Version 1)
Quarter: 2024Q2

REPORT INFORMATION
  Report Type: Spontaneous
  Country: US (occurrence: None)
  Receive Date: 20240530
  Receipt Date: 20240530
  Transmission Date: 20240716
  Serious: No
  Sender: FDA-Public Use
  Company Number: None

PATIENT

DRUGS (1)
  1. TRANEXAMIC ACID [Suspect]
     Active Substance: TRANEXAMIC ACID

REACTIONS (7)
  - Hypersensitivity [None]
  - Respiratory disorder [None]
  - Cardiac disorder [None]
  - Syncope [None]
  - Cardiospasm [None]
  - Malaise [None]
  - Visual impairment [None]

NARRATIVE: CASE EVENT DATE: 20181112
